FAERS Safety Report 5376030-2 (Version None)
Quarter: 2007Q2

REPORT INFORMATION
  Report Type: 
  Country: None (occurrence: None)
  Receive Date: 20070628
  Receipt Date: 20070619
  Transmission Date: 20071010
  Serious: Yes (Other)
  Sender: FDA-Public Use
  Company Number: B0476359A

PATIENT
  Age: 54 Year
  Sex: Male

DRUGS (8)
  1. COMBIVIR [Suspect]
     Indication: ACQUIRED IMMUNODEFICIENCY SYNDROME
  2. EFAVIRENZ [Suspect]
     Indication: ACQUIRED IMMUNODEFICIENCY SYNDROME
  3. COTRIM [Concomitant]
  4. ISONIAZID [Concomitant]
  5. RIFAMPICIN [Concomitant]
  6. ETHAMBUTOL HYDROCHLORIDE [Concomitant]
  7. PYRAZINAMIDE [Concomitant]
  8. PREDNISOLONE [Concomitant]

REACTIONS (4)
  - CONDITION AGGRAVATED [None]
  - IMMUNE RECONSTITUTION SYNDROME [None]
  - PARADOXICAL DRUG REACTION [None]
  - TUBERCULOMA OF CENTRAL NERVOUS SYSTEM [None]
